FAERS Safety Report 10383242 (Version 1)
Quarter: 2014Q3

REPORT INFORMATION
  Report Type: Spontaneous
  Country: CA (occurrence: CA)
  Receive Date: 20140814
  Receipt Date: 20140814
  Transmission Date: 20150326
  Serious: Yes (Hospitalization, Other)
  Sender: FDA-Public Use
  Company Number: PHHY2014CA097001

PATIENT
  Age: 78 Year
  Sex: Male

DRUGS (3)
  1. LEVOTHYROXINE [Concomitant]
     Active Substance: LEVOTHYROXINE
     Indication: PITUITARY TUMOUR BENIGN
     Dosage: 100 UG PER DAY
  2. PREDNISONE. [Interacting]
     Active Substance: PREDNISONE
     Dosage: 5 MG PER DAY
  3. CLARITHROMYCIN. [Suspect]
     Active Substance: CLARITHROMYCIN
     Dosage: 1 G PER DAY

REACTIONS (10)
  - Mania [Recovering/Resolving]
  - Pressure of speech [Recovering/Resolving]
  - Aggression [Recovering/Resolving]
  - Elevated mood [Recovering/Resolving]
  - Thinking abnormal [Recovering/Resolving]
  - Impulsive behaviour [Recovering/Resolving]
  - Delusion of grandeur [Recovering/Resolving]
  - Insomnia [Recovering/Resolving]
  - Drug interaction [Recovering/Resolving]
  - Judgement impaired [Recovering/Resolving]
